FAERS Safety Report 14385228 (Version 2)
Quarter: 2018Q4

REPORT INFORMATION
  Report Type: Spontaneous
  Country: US (occurrence: US)
  Receive Date: 20180115
  Receipt Date: 20181204
  Transmission Date: 20190204
  Serious: Yes (Other)
  Sender: FDA-Public Use
  Company Number: US-SA-2017SA000190

PATIENT
  Age: 68 Year
  Sex: Female
  Weight: 106.59 kg

DRUGS (14)
  1. PRAVASTATIN. [Concomitant]
     Active Substance: PRAVASTATIN
     Dosage: UNK UNK,UNK
     Route: 065
     Dates: start: 2005
  2. KLOR-CON [Concomitant]
     Active Substance: POTASSIUM CHLORIDE
  3. NEOSAR [Concomitant]
     Active Substance: CYCLOPHOSPHAMIDE
     Dosage: UNK
  4. TAXOTERE [Suspect]
     Active Substance: DOCETAXEL
     Indication: BREAST CANCER FEMALE
     Dosage: 164 MG,QCY
     Route: 042
     Dates: start: 20140915, end: 20140915
  5. OMEPRAZOLE. [Concomitant]
     Active Substance: OMEPRAZOLE
     Dosage: UNK UNK,UNK
     Route: 065
     Dates: start: 1994
  6. PALONOSETRON. [Concomitant]
     Active Substance: PALONOSETRON HYDROCHLORIDE
  7. ONDANSETRON [Concomitant]
     Active Substance: ONDANSETRON
  8. GABAPENTIN. [Concomitant]
     Active Substance: GABAPENTIN
     Dosage: UNK
  9. WARFARIN [Concomitant]
     Active Substance: WARFARIN
  10. HYDROCODONE/ACETAMINOPHEN [Concomitant]
     Active Substance: ACETAMINOPHEN\HYDROCODONE
  11. GRANISETRON [Concomitant]
     Active Substance: GRANISETRON
  12. DEXAMETHASONE. [Concomitant]
     Active Substance: DEXAMETHASONE
  13. LORAZEPAM. [Concomitant]
     Active Substance: LORAZEPAM
  14. TAXOTERE [Suspect]
     Active Substance: DOCETAXEL
     Dosage: 164 MG,QCY
     Route: 042
     Dates: start: 20141229, end: 20141229

REACTIONS (5)
  - Alopecia [Recovering/Resolving]
  - Anxiety [Unknown]
  - Pain [Unknown]
  - Emotional distress [Unknown]
  - Psychological trauma [Unknown]
